FAERS Safety Report 25388406 (Version 1)
Quarter: 2025Q2

REPORT INFORMATION
  Report Type: Spontaneous
  Country: US (occurrence: US)
  Receive Date: 20250603
  Receipt Date: 20250603
  Transmission Date: 20250717
  Serious: Yes (Other)
  Sender: SANOFI AVENTIS
  Company Number: US-SA-2025SA155363

PATIENT
  Age: 76 Year
  Sex: Female
  Weight: 60.771 kg

DRUGS (16)
  1. DUPIXENT [Suspect]
     Active Substance: DUPILUMAB
     Indication: Dermatitis atopic
     Dosage: 300 MG, QOW
     Route: 058
     Dates: start: 20240503
  2. FLECAINIDE [Suspect]
     Active Substance: FLECAINIDE
  3. CALCIUM [Concomitant]
     Active Substance: CALCIUM
  4. VITAMIN D3 [Concomitant]
     Active Substance: CHOLECALCIFEROL
  5. FERROUS SULFATE [Concomitant]
     Active Substance: FERROUS SULFATE
  6. LORATADINE [Concomitant]
     Active Substance: LORATADINE
  7. OMEPRAZOLE [Concomitant]
     Active Substance: OMEPRAZOLE
  8. TIZANIDINE HYDROCHLORIDE [Concomitant]
     Active Substance: TIZANIDINE HYDROCHLORIDE
  9. FLECAINIDE ACETATE [Concomitant]
     Active Substance: FLECAINIDE ACETATE
  10. LISINOPRIL [Concomitant]
     Active Substance: LISINOPRIL
  11. ELIQUIS [Concomitant]
     Active Substance: APIXABAN
  12. METOPROLOL SUCCINATE [Concomitant]
     Active Substance: METOPROLOL SUCCINATE
  13. AZELASTINE HYDROCHLORIDE [Concomitant]
     Active Substance: AZELASTINE HYDROCHLORIDE
  14. GAVILYTE G [Concomitant]
     Active Substance: POLYETHYLENE GLYCOL 3350\POTASSIUM CHLORIDE\SODIUM BICARBONATE\SODIUM CHLORIDE\SODIUM SULFATE
  15. ROSUVASTATIN CALCIUM [Concomitant]
     Active Substance: ROSUVASTATIN CALCIUM
  16. AMLODIPINE BESYLATE [Concomitant]
     Active Substance: AMLODIPINE BESYLATE

REACTIONS (12)
  - Atrial fibrillation [Unknown]
  - Transient ischaemic attack [Unknown]
  - Weight decreased [Unknown]
  - Hypotension [Unknown]
  - Lethargy [Unknown]
  - Heart rate increased [Unknown]
  - Nausea [Unknown]
  - Typical aura without headache [Unknown]
  - Dizziness [Unknown]
  - Diarrhoea [Unknown]
  - Neck pain [Unknown]
  - Injection site pain [Unknown]

NARRATIVE: CASE EVENT DATE: 20250501
